FAERS Safety Report 25982275 (Version 1)
Quarter: 2025Q4

REPORT INFORMATION
  Report Type: Spontaneous
  Country: CA (occurrence: CA)
  Receive Date: 20251031
  Receipt Date: 20251031
  Transmission Date: 20260118
  Serious: Yes (Hospitalization)
  Sender: PHARMACOSMOS A/S
  Company Number: CA-NEBO-711671

PATIENT
  Age: 77 Year
  Sex: Male

DRUGS (1)
  1. MONOFERRIC [Suspect]
     Active Substance: FERRIC DERISOMALTOSE
     Indication: Iron deficiency anaemia

REACTIONS (2)
  - Anaphylactic reaction [Recovered/Resolved]
  - Renal failure [Recovered/Resolved]
